FAERS Safety Report 23560710 (Version 5)
Quarter: 2024Q3

REPORT INFORMATION
  Report Type: Spontaneous
  Country: US (occurrence: US)
  Receive Date: 20240223
  Receipt Date: 20240718
  Transmission Date: 20241016
  Serious: No
  Sender: PFIZER
  Company Number: US-PFIZER INC-202400048935

PATIENT
  Age: 48 Year
  Sex: Female

DRUGS (2)
  1. VELSIPITY [Suspect]
     Active Substance: ETRASIMOD ARGININE
     Dosage: 2 MG
     Dates: start: 20240222
  2. HYDROXYZINE [Concomitant]
     Active Substance: HYDROXYZINE HYDROCHLORIDE
     Indication: Anxiety
     Dosage: UNK

REACTIONS (8)
  - Panic attack [Not Recovered/Not Resolved]
  - Dyspepsia [Unknown]
  - Dyspnoea [Unknown]
  - Headache [Unknown]
  - Hypersensitivity [Unknown]
  - Ear congestion [Unknown]
  - Nausea [Unknown]
  - Condition aggravated [Unknown]

NARRATIVE: CASE EVENT DATE: 20240101
